FAERS Safety Report 25155982 (Version 3)
Quarter: 2025Q2

REPORT INFORMATION
  Report Type: Spontaneous
  Country: US (occurrence: US)
  Receive Date: 20250403
  Receipt Date: 20250403
  Transmission Date: 20250717
  Serious: No
  Sender: LIFE MOLECULAR IMAGING LTD
  Company Number: US-Life Molecular Imaging Ltd-2174218

PATIENT
  Age: 82 Year
  Sex: Male

DRUGS (7)
  1. NEURACEQ [Suspect]
     Active Substance: FLORBETABEN F-18
     Indication: Imaging procedure
     Dates: start: 20240918, end: 20240918
  2. ATORVASTATIN [Concomitant]
     Active Substance: ATORVASTATIN
  3. XARELTO [Concomitant]
     Active Substance: RIVAROXABAN
  4. TEMAZEPAM [Concomitant]
     Active Substance: TEMAZEPAM
  5. TAMSULOSIN [Concomitant]
     Active Substance: TAMSULOSIN
  6. METOPROLOL [Concomitant]
     Active Substance: METOPROLOL
  7. MEMANTINE [Concomitant]
     Active Substance: MEMANTINE

REACTIONS (4)
  - Asthenia [Recovered/Resolved]
  - Fatigue [Recovered/Resolved]
  - Balance disorder [Recovered/Resolved]
  - Dizziness [Recovered/Resolved]

NARRATIVE: CASE EVENT DATE: 20240918
